FAERS Safety Report 6664569-9 (Version None)
Quarter: 2010Q2

REPORT INFORMATION
  Report Type: 
  Country: None (occurrence: None)
  Receive Date: 20100401
  Receipt Date: 20100324
  Transmission Date: 20101027
  Serious: Yes (Hospitalization)
  Sender: FDA-Public Use
  Company Number: FR-PFIZER INC-2010038189

PATIENT
  Age: 79 Year
  Sex: Female

DRUGS (16)
  1. TAHOR [Suspect]
     Dosage: 10 MG, 1X/DAY
     Route: 048
     Dates: start: 20060101
  2. FLUDARABINE [Suspect]
     Dosage: 4 CYCLES BETWEEN 09NOV2006 TO 13APR2007 AND 4 CYCLES BETWEEN 12FEB2008 TO 29MAY2008
     Dates: start: 20061109, end: 20080529
  3. BACTRIM DS [Suspect]
     Dosage: 1 TABLET EVERY 3 WEEKS
     Route: 048
     Dates: start: 20061101, end: 20080501
  4. SECTRAL [Suspect]
     Dosage: 200 MG, 1X/DAY
     Route: 048
     Dates: start: 20050101, end: 20090301
  5. MICARDIS HCT [Concomitant]
     Dosage: UNK
     Dates: start: 20050101
  6. MICARDIS HCT [Concomitant]
     Dosage: UNK
     Dates: start: 20080201
  7. TRIATEC [Concomitant]
  8. TAREG [Concomitant]
     Dosage: UNK
     Dates: start: 20060101, end: 20080201
  9. LEVOTHYROX [Concomitant]
     Dosage: UNK
     Dates: start: 20050101
  10. ZELITREX [Concomitant]
     Dosage: 500
     Dates: start: 20060101
  11. LANSOPRAZOLE [Concomitant]
     Dosage: UNK
     Dates: start: 20060101
  12. EUPANTOL [Concomitant]
     Dosage: UNK
     Dates: start: 20060101
  13. NEBIVOLOL [Concomitant]
     Dosage: UNK
     Dates: start: 20090301
  14. CHLORAMINOPHENE [Concomitant]
     Dosage: UNK
     Dates: start: 20060920, end: 20060920
  15. SPECIAFOLDINE [Concomitant]
     Dosage: UNK
     Dates: start: 20061101, end: 20080501
  16. CYCLOPHOSPHAMIDE [Concomitant]
     Dosage: 4 CYCLES
     Dates: start: 20080212, end: 20080529

REACTIONS (1)
  - LUNG DISORDER [None]
